FAERS Safety Report 25487654 (Version 1)
Quarter: 2025Q2

REPORT INFORMATION
  Report Type: Spontaneous
  Country: KH (occurrence: KH)
  Receive Date: 20250627
  Receipt Date: 20250627
  Transmission Date: 20250716
  Serious: Yes (Other)
  Sender: NOVARTIS
  Company Number: KH-002147023-NVSC2025KH102652

PATIENT
  Sex: Female

DRUGS (1)
  1. NILOTINIB [Suspect]
     Active Substance: NILOTINIB
     Indication: Chronic myeloid leukaemia
     Route: 065
     Dates: end: 202301

REACTIONS (2)
  - Thrombocytosis [Unknown]
  - Leukocytosis [Unknown]
